FAERS Safety Report 9024954 (Version 2)
Quarter: 2013Q1

REPORT INFORMATION
  Report Type: Spontaneous
  Country: JP (occurrence: JP)
  Receive Date: 20130121
  Receipt Date: 20130220
  Transmission Date: 20140127
  Serious: Yes (Death, Disabling)
  Sender: FDA-Public Use
  Company Number: JP-JNJFOC-20130108052

PATIENT
  Age: 94 None
  Sex: Female
  Weight: 43 kg

DRUGS (8)
  1. XARELTO [Suspect]
     Indication: CEREBROVASCULAR ACCIDENT PROPHYLAXIS
     Route: 048
     Dates: start: 20121115, end: 20121203
  2. LASIX [Concomitant]
     Indication: HYPERTENSION
     Route: 048
     Dates: start: 20121126, end: 20121206
  3. ALDACTONE A [Concomitant]
     Indication: HYPERTENSION
     Route: 048
     Dates: start: 20121126, end: 20121206
  4. THYRADIN S [Concomitant]
     Indication: PRODUCT USED FOR UNKNOWN INDICATION
     Dosage: DAILY DOSE 50??G
     Route: 048
     Dates: start: 20121126, end: 20121206
  5. LANZOPRAZOL [Concomitant]
     Indication: PROPHYLAXIS AGAINST GASTROINTESTINAL ULCER
     Route: 048
     Dates: start: 20121126, end: 20121206
  6. UBRETID [Concomitant]
     Indication: NEUROGENIC BLADDER
     Route: 048
     Dates: start: 20121126, end: 20121206
  7. EICOSAPENTAENOIC ACID ETHYL ESTER [Concomitant]
     Indication: PERIPHERAL ARTERIAL OCCLUSIVE DISEASE
     Route: 048
     Dates: start: 20121126, end: 20121203
  8. LORFENAMIN [Concomitant]
     Indication: CHONDROCALCINOSIS PYROPHOSPHATE
     Route: 048
     Dates: start: 20121126, end: 20121203

REACTIONS (2)
  - Acute myocardial infarction [Fatal]
  - Peripheral embolism [Not Recovered/Not Resolved]
